FAERS Safety Report 6477525-0 (Version None)
Quarter: 2009Q4

REPORT INFORMATION
  Report Type: 
  Country: None (occurrence: None)
  Receive Date: 20091202
  Receipt Date: 20091120
  Transmission Date: 20100525
  Serious: Yes (Other)
  Sender: FDA-Public Use
  Company Number: 2009SP038088

PATIENT
  Age: 52 Year
  Sex: Male

DRUGS (2)
  1. NOXAFIL [Suspect]
     Indication: SKIN GRAFT
     Dosage: NOXAFIL (POSACONAZOLE) (POSACONAZOLE)
     Dates: start: 20090101, end: 20090101
  2. NOXAFIL [Suspect]
     Indication: SKIN GRAFT
     Dosage: NOXAFIL (POSACONAZOLE) (POSACONAZOLE)
     Dates: start: 20091116, end: 20091120

REACTIONS (3)
  - GASTROINTESTINAL HAEMORRHAGE [None]
  - MELAENA [None]
  - RECTAL HAEMORRHAGE [None]
